FAERS Safety Report 6245982-0 (Version None)
Quarter: 2009Q2

REPORT INFORMATION
  Report Type: 
  Country: None (occurrence: None)
  Receive Date: 20090626
  Receipt Date: 20080929
  Transmission Date: 20091009
  Serious: No
  Sender: FDA-Public Use
  Company Number: A0749241A

PATIENT
  Age: 44 Year
  Sex: Female

DRUGS (6)
  1. IMITREX [Suspect]
     Indication: MIGRAINE
     Dosage: 100MG VARIABLE DOSE
     Route: 048
     Dates: start: 20000101, end: 20060101
  2. BUPROPION [Concomitant]
  3. DOXEPIN HCL [Concomitant]
  4. PERCOCET [Concomitant]
  5. ROBAXIN [Concomitant]
  6. DONNATAL [Concomitant]

REACTIONS (3)
  - MIGRAINE [None]
  - NAUSEA [None]
  - PALPITATIONS [None]
